FAERS Safety Report 8803068 (Version 1)
Quarter: 2012Q4

REPORT INFORMATION
  Report Type: 
  Country: NO (occurrence: NO)
  Receive Date: 20120924
  Receipt Date: 20120924
  Transmission Date: 20130627
  Serious: Yes (Hospitalization, Other)
  Sender: FDA-Public Use
  Company Number: NO-PFIZER INC-2012231962

PATIENT
  Age: 7 None
  Sex: Female

DRUGS (4)
  1. METHYLPREDNISOLONE SODIUM SUCCINATE [Suspect]
     Indication: WEGENER^S GRANULOMATOSIS
     Dosage: 1000 mg, 1x/day x 5 days
     Route: 042
  2. METHYLPREDNISOLONE SODIUM SUCCINATE [Suspect]
     Dosage: 20 mg x 3
  3. RITUXIMAB [Concomitant]
     Indication: WEGENER^S GRANULOMATOSIS
     Route: 065
  4. CYCLOPHOSPHAMIDE [Concomitant]
     Indication: WEGENER^S GRANULOMATOSIS
     Dosage: 15 mg/kg every other week
     Route: 042

REACTIONS (2)
  - Critical illness myopathy [Recovered/Resolved]
  - Neuropathy peripheral [Recovered/Resolved]
